FAERS Safety Report 7067841-6 (Version None)
Quarter: 2010Q4

REPORT INFORMATION
  Report Type: 
  Country: None (occurrence: None)
  Receive Date: 20101028
  Receipt Date: 20101020
  Transmission Date: 20110411
  Serious: Yes (Death, Other)
  Sender: FDA-Public Use
  Company Number: JP-PFIZER INC-2010124400

PATIENT
  Age: 42 Year
  Sex: Male
  Weight: 58 kg

DRUGS (18)
  1. LYRICA [Suspect]
     Indication: PAIN
     Dosage: UNK
     Route: 048
     Dates: start: 20100816, end: 20100928
  2. LYRICA [Suspect]
     Indication: BACK PAIN
  3. GABAPEN [Suspect]
     Indication: PAIN
     Dosage: UNK
     Route: 048
     Dates: start: 20100803, end: 20100816
  4. FENTANYL [Suspect]
     Indication: PAIN
     Dosage: 2.1 MG, UNK
     Route: 062
     Dates: start: 20100522, end: 20100614
  5. FENTANYL [Suspect]
     Dosage: 4.2 MG, UNK
     Dates: start: 20100615, end: 20100620
  6. FENTANYL [Suspect]
     Dosage: 2.1 MG, UNK
     Dates: start: 20100621, end: 20100627
  7. FENTANYL [Suspect]
     Dosage: 4.2 MG, UNK
     Dates: start: 20100628, end: 20100905
  8. FENTANYL [Suspect]
     Dosage: 2.1 MG, UNK
     Dates: start: 20100906, end: 20100913
  9. FENTANYL [Suspect]
     Dosage: 4.2 MG, UNK
     Dates: start: 20100914
  10. AMITRIPTYLINE HCL [Suspect]
     Dosage: 10 MG, 3X/DAY
     Route: 048
     Dates: start: 20090817, end: 20100928
  11. MORPHINE HYDROCHLORIDE [Suspect]
     Indication: PAIN
     Dosage: UNK
     Route: 048
     Dates: start: 20100518, end: 20100928
  12. ALPRAZOLAM [Suspect]
     Indication: INSOMNIA
     Dosage: 0.4 MG, 2X/DAY
     Route: 048
     Dates: start: 20091022, end: 20100928
  13. LANDSEN [Suspect]
     Dosage: 0.5 MG, 1X/DAY
     Route: 048
     Dates: start: 20090803, end: 20100928
  14. NEUROTROPIN [Concomitant]
     Indication: PAIN
     Dosage: 2 IU, 2X/DAY
     Route: 048
     Dates: end: 20100928
  15. MAGNESIUM OXIDE [Concomitant]
     Indication: CONSTIPATION
     Dosage: 660 MG, 3X/DAY
     Route: 048
     Dates: start: 20100614, end: 20100928
  16. PURSENNID [Concomitant]
     Indication: CONSTIPATION
     Dosage: 24 MG, 1X/DAY
     Route: 048
     Dates: start: 20100518, end: 20100928
  17. GASCON [Concomitant]
     Indication: CONSTIPATION
     Dosage: 30 MG, 3X/DAY
     Route: 048
     Dates: start: 20100628, end: 20100928
  18. VOLTAREN [Concomitant]
     Indication: PAIN
     Dosage: 50 MG, UNK
     Route: 054
     Dates: end: 20100928

REACTIONS (5)
  - CARDIAC FAILURE [None]
  - CARDIO-RESPIRATORY ARREST [None]
  - INSOMNIA [None]
  - PAIN [None]
  - SUICIDAL IDEATION [None]
